FAERS Safety Report 15215209 (Version 1)
Quarter: 2018Q3

REPORT INFORMATION
  Report Type: Report from Study
  Country: US (occurrence: US)
  Receive Date: 20180730
  Receipt Date: 20180730
  Transmission Date: 20181010
  Serious: Yes (Life-Threatening, Hospitalization)
  Sender: FDA-Public Use
  Company Number: US-ELI_LILLY_AND_COMPANY-US201807012218

PATIENT
  Age: 60 Year
  Sex: Male

DRUGS (6)
  1. CETUXIMAB. [Suspect]
     Active Substance: CETUXIMAB
     Dosage: 450 MG, UNKNOWN
     Route: 065
     Dates: start: 20180709
  2. LASIX [Concomitant]
     Active Substance: FUROSEMIDE
     Indication: PRODUCT USED FOR UNKNOWN INDICATION
  3. CETUXIMAB. [Suspect]
     Active Substance: CETUXIMAB
     Indication: HYPOPHARYNGEAL NEOPLASM
     Dosage: 600 MG, UNKNOWN
     Route: 065
     Dates: start: 20180626
  4. CETUXIMAB. [Suspect]
     Active Substance: CETUXIMAB
     Dosage: 450 MG, UNKNOWN
     Route: 065
     Dates: start: 20180702
  5. CARBOPLATIN. [Suspect]
     Active Substance: CARBOPLATIN
     Indication: NEOPLASM MALIGNANT
     Dosage: UNK, UNKNOWN
     Route: 065
     Dates: start: 20180716
  6. CETUXIMAB. [Suspect]
     Active Substance: CETUXIMAB
     Dosage: 400 MG, UNKNOWN
     Route: 065
     Dates: start: 20180716

REACTIONS (7)
  - Infusion related reaction [Recovered/Resolved]
  - Hyponatraemia [Recovered/Resolved]
  - Atrial fibrillation [Recovered/Resolved]
  - Cardio-respiratory arrest [Recovered/Resolved]
  - Cardiac failure chronic [Recovered/Resolved]
  - Chronic obstructive pulmonary disease [Recovered/Resolved]
  - Pneumonia [Recovered/Resolved]

NARRATIVE: CASE EVENT DATE: 20180716
